FAERS Safety Report 22102878 (Version 1)
Quarter: 2023Q1

REPORT INFORMATION
  Report Type: Spontaneous
  Country: US (occurrence: US)
  Receive Date: 20230316
  Receipt Date: 20230316
  Transmission Date: 20230418
  Serious: No
  Sender: FDA-Public Use
  Company Number: US-BAYER-2023A031744

PATIENT
  Age: 78 Year
  Sex: Male

DRUGS (1)
  1. ASTEPRO [Suspect]
     Active Substance: AZELASTINE HYDROCHLORIDE
     Indication: Allergic sinusitis
     Dosage: 1 DF
     Route: 045
     Dates: start: 20230303, end: 20230303

REACTIONS (2)
  - Epistaxis [None]
  - Rhinalgia [None]

NARRATIVE: CASE EVENT DATE: 20230303
